FAERS Safety Report 8953348 (Version 2)
Quarter: 2014Q2

REPORT INFORMATION
  Report Type: Spontaneous
  Country: US (occurrence: US)
  Receive Date: 20121206
  Receipt Date: 20131024
  Transmission Date: 20141212
  Serious: No
  Sender: FDA-Public Use
  Company Number: US-PFIZER INC-2012303982

PATIENT
  Sex: 0

DRUGS (2)
  1. ZOSYN [Suspect]
     Dosage: UNK
  2. VANCOMYCIN HCL [Interacting]
     Dosage: UNK

REACTIONS (2)
  - Drug interaction [Unknown]
  - Nephropathy toxic [Unknown]
